FAERS Safety Report 14840557 (Version 4)
Quarter: 2019Q4

REPORT INFORMATION
  Report Type: Spontaneous
  Country: GR (occurrence: GR)
  Receive Date: 20180503
  Receipt Date: 20191220
  Transmission Date: 20200122
  Serious: Yes (Death, Life-Threatening, Other)
  Sender: FDA-Public Use
  Company Number: GR-ACCORD-065382

PATIENT
  Age: 19 Year
  Sex: Female

DRUGS (4)
  1. BLEOMYCIN [Suspect]
     Active Substance: BLEOMYCIN SULFATE
     Indication: OVARIAN CANCER
     Dosage: TWO CYCLES
  2. ETOPOSIDE. [Suspect]
     Active Substance: ETOPOSIDE
     Indication: OVARIAN CANCER
     Dosage: TWO CYCLES; FOLLOWED BY THREE CYCLES AFTER DECREASE IN CA125
  3. ZOLEDRONIC ACID [Suspect]
     Active Substance: ZOLEDRONIC ACID
     Indication: HYPERCALCAEMIA
  4. CISPLATIN. [Suspect]
     Active Substance: CISPLATIN
     Indication: OVARIAN CANCER

REACTIONS (7)
  - Rectal haemorrhage [Unknown]
  - Anaemia [Fatal]
  - Hepatic lesion [Unknown]
  - Neoplasm recurrence [Unknown]
  - Thrombocytopenia [Fatal]
  - Malignant neoplasm progression [Unknown]
  - Neutropenia [Fatal]
